FAERS Safety Report 4560718-7 (Version None)
Quarter: 2005Q1

REPORT INFORMATION
  Report Type: 
  Country: None (occurrence: None)
  Receive Date: 20050121
  Receipt Date: 20050112
  Transmission Date: 20050727
  Serious: Yes (Death, Hospitalization)
  Sender: FDA-Public Use
  Company Number: 2005-01-0596

PATIENT
  Age: 35 Year
  Sex: Male

DRUGS (2)
  1. REBETOL [Suspect]
     Indication: HEPATITIS C
     Dosage: 1000 MG QD ORAL
     Route: 048
     Dates: start: 20040620, end: 20040702
  2. PEGASYS [Suspect]
     Indication: HEPATITIS C
     Dosage: 360 MCG SUBCUTANEOUS
     Route: 058
     Dates: start: 20040620, end: 20040702

REACTIONS (2)
  - HEPATIC FAILURE [None]
  - MITOCHONDRIAL TOXICITY [None]
